FAERS Safety Report 6306912-6 (Version None)
Quarter: 2009Q3

REPORT INFORMATION
  Report Type: 
  Country: None (occurrence: None)
  Receive Date: 20090811
  Receipt Date: 20090811
  Transmission Date: 20100115
  Serious: Yes (Disabling, Other)
  Sender: FDA-Public Use
  Company Number: None

PATIENT
  Age: 25 Year
  Sex: Female
  Weight: 56.6996 kg

DRUGS (1)
  1. ACCUTANE [Suspect]
     Indication: ACNE CYSTIC
     Dosage: DAILY ENDOTRACHEAL
     Route: 007
     Dates: start: 19850401, end: 19850830

REACTIONS (13)
  - ARTHROPATHY [None]
  - COUGH [None]
  - DRUG PRESCRIBING ERROR [None]
  - DRY EYE [None]
  - DRY SKIN [None]
  - DRY THROAT [None]
  - DYSPNOEA [None]
  - EPISTAXIS [None]
  - HEADACHE [None]
  - HYPERKERATOSIS [None]
  - LACRIMAL DISORDER [None]
  - NASAL DRYNESS [None]
  - PAIN [None]
